FAERS Safety Report 24098619 (Version 1)
Quarter: 2024Q3

REPORT INFORMATION
  Report Type: Spontaneous
  Country: US (occurrence: US)
  Receive Date: 20240716
  Receipt Date: 20240716
  Transmission Date: 20241017
  Serious: No
  Sender: JOHNSON AND JOHNSON
  Company Number: US-VIIV HEALTHCARE LIMITED-US2024AMR085415

PATIENT
  Sex: Male

DRUGS (2)
  1. RILPIVIRINE [Suspect]
     Active Substance: RILPIVIRINE
     Indication: HIV infection
     Dosage: UNK (INJECT CABOTEGRAVIR 600 MG (3 ML) AND RILPIVIRINE 900 MG (3ML) INTO THE MUSCLE AS DIRECTED)
     Route: 030
  2. CABOTEGRAVIR [Suspect]
     Active Substance: CABOTEGRAVIR
     Indication: HIV infection
     Dosage: UNK (INJECT CABOTEGRAVIR 600 MG (3 ML) AND RILPIVIRINE 900 MG (3ML) INTO THE MUSCLE AS DIRECTED)
     Route: 030

REACTIONS (1)
  - Injection site pain [Unknown]
